FAERS Safety Report 6135970-7 (Version None)
Quarter: 2009Q1

REPORT INFORMATION
  Report Type: 
  Country: None (occurrence: None)
  Receive Date: 20090329
  Receipt Date: 20080623
  Transmission Date: 20090719
  Serious: No
  Sender: FDA-Public Use
  Company Number: US-BAUSCH-2008BL002806

PATIENT
  Age: 47 Year
  Sex: Female

DRUGS (2)
  1. LOTEMAX [Suspect]
     Indication: EYE ALLERGY
     Route: 047
     Dates: start: 20080618, end: 20080618
  2. PLAQUENIL [Concomitant]
     Indication: ARTHRITIS

REACTIONS (3)
  - DIZZINESS [None]
  - FEELING ABNORMAL [None]
  - NAUSEA [None]
